FAERS Safety Report 17426235 (Version 1)
Quarter: 2020Q1

REPORT INFORMATION
  Report Type: Spontaneous
  Country: TW (occurrence: TW)
  Receive Date: 20200218
  Receipt Date: 20200218
  Transmission Date: 20200409
  Serious: Yes (Other)
  Sender: FDA-Public Use
  Company Number: TW-009507513-2002TWN005137

PATIENT
  Age: 62 Year
  Sex: Female

DRUGS (1)
  1. GRAZOPREVIR (+) ELBASVIR [Suspect]
     Active Substance: ELBASVIR\GRAZOPREVIR
     Indication: CHRONIC HEPATITIS C
     Dosage: FIXED-DOSE COMBINATION OF ELBASVIR (50 MG)/GRAZOPREVIR (100 MG), ONCE DAILY
     Route: 048

REACTIONS (1)
  - Autoimmune hepatitis [Recovered/Resolved]
